FAERS Safety Report 8575963-3 (Version None)
Quarter: 2012Q3

REPORT INFORMATION
  Report Type: 
  Country: None (occurrence: None)
  Receive Date: 20120807
  Receipt Date: 20120724
  Transmission Date: 20120928
  Serious: No
  Sender: FDA-Public Use
  Company Number: US-009507513-1208USA002278

PATIENT

DRUGS (3)
  1. CLARITIN [Suspect]
     Indication: LACRIMATION INCREASED
  2. CLARITIN [Suspect]
     Indication: NASAL CONGESTION
     Dosage: 10 MG, BID
  3. CLARITIN [Suspect]
     Indication: MEDICAL OBSERVATION

REACTIONS (1)
  - OVERDOSE [None]
